FAERS Safety Report 24443634 (Version 2)
Quarter: 2024Q4

REPORT INFORMATION
  Report Type: Report from Study
  Country: US (occurrence: US)
  Receive Date: 20241016
  Receipt Date: 20241017
  Transmission Date: 20250115
  Serious: No
  Sender: ROCHE
  Company Number: US-ROCHE-1995940

PATIENT
  Age: 81 Year
  Sex: Male
  Weight: 129.72 kg

DRUGS (22)
  1. RITUXAN [Suspect]
     Active Substance: RITUXIMAB
     Indication: Nephrotic syndrome
     Dosage: DATE OF SERVICE20/AUG/2019,04/SEP/2019,28/SEP/2020.10/MAY/2021,01/NOV/2021,02/MAY/2022
     Route: 042
     Dates: start: 20161105
  2. RITUXAN [Suspect]
     Active Substance: RITUXIMAB
     Indication: Monoclonal gammopathy
     Dosage: FREQUENCY TEXT:DAY 1 AND DAY 14
     Route: 042
     Dates: start: 20161115, end: 20170823
  3. RITUXAN [Suspect]
     Active Substance: RITUXIMAB
     Indication: Glomerulonephritis membranoproliferative
     Route: 042
     Dates: start: 20190904, end: 20190904
  4. RITUXAN [Suspect]
     Active Substance: RITUXIMAB
     Indication: Renal neoplasm
     Dosage: 500MG/50ML
     Route: 042
     Dates: start: 20190820, end: 20190820
  5. RITUXAN [Suspect]
     Active Substance: RITUXIMAB
     Dosage: 500MG/50ML SDV
     Route: 042
     Dates: start: 20170823
  6. RITUXAN [Suspect]
     Active Substance: RITUXIMAB
     Route: 042
     Dates: start: 20200928, end: 20200929
  7. RITUXAN [Suspect]
     Active Substance: RITUXIMAB
     Dosage: FREQUENCY TEXT:ONCE
     Route: 042
     Dates: start: 20220502
  8. RITUXAN [Suspect]
     Active Substance: RITUXIMAB
     Route: 042
     Dates: start: 20230502
  9. RITUXAN [Suspect]
     Active Substance: RITUXIMAB
     Route: 042
     Dates: start: 20221102
  10. RITUXAN [Suspect]
     Active Substance: RITUXIMAB
     Route: 042
     Dates: start: 20231102
  11. BENADRYL [Concomitant]
     Active Substance: DIPHENHYDRAMINE HYDROCHLORIDE
     Dosage: 50MG/1ML SDV
     Route: 042
  12. TYLENOL [Concomitant]
     Active Substance: ACETAMINOPHEN
     Route: 048
  13. ACETAMINOPHEN [Concomitant]
     Active Substance: ACETAMINOPHEN
     Dosage: 2 TABLETS PER DOSE
     Route: 048
  14. CODEINE [Concomitant]
     Active Substance: CODEINE
  15. HYDROCODONE [Concomitant]
     Active Substance: HYDROCODONE
  16. MORPHINE [Concomitant]
     Active Substance: MORPHINE
  17. OXYCODONE [Concomitant]
     Active Substance: OXYCODONE
  18. TRAMADOL [Concomitant]
     Active Substance: TRAMADOL
  19. DIPHENHYDRAMINE [Concomitant]
     Active Substance: DIPHENHYDRAMINE
     Dosage: FREQUENCY TEXT:DAY 1 AND DAY 14
     Route: 042
  20. HEPARIN [Concomitant]
     Active Substance: HEPARIN SODIUM
     Dosage: 500 UNITS/ 5 ML
     Dates: start: 20190820
  21. SODIUM CHLORIDE [Concomitant]
     Active Substance: SODIUM CHLORIDE
     Dates: start: 20190820
  22. LORAZEPAM [Concomitant]
     Active Substance: LORAZEPAM

REACTIONS (2)
  - Off label use [Unknown]
  - No adverse event [Unknown]
